FAERS Safety Report 5589691-X (Version None)
Quarter: 2008Q1

REPORT INFORMATION
  Report Type: 
  Country: None (occurrence: None)
  Receive Date: 20080114
  Receipt Date: 20080111
  Transmission Date: 20080703
  Serious: Yes (Hospitalization)
  Sender: FDA-Public Use
  Company Number: B0487069A

PATIENT
  Age: 87 Year
  Sex: Female
  Weight: 45 kg

DRUGS (17)
  1. ARIXTRA [Suspect]
     Indication: THROMBOSIS PROPHYLAXIS
     Dosage: 2.5MG PER DAY
     Route: 058
     Dates: start: 20070904, end: 20070909
  2. ASPIRIN [Suspect]
     Indication: DRUG USE FOR UNKNOWN INDICATION
     Dosage: 100MG PER DAY
     Route: 048
     Dates: start: 20070901, end: 20070908
  3. LOXONIN [Concomitant]
     Dosage: 60MG THREE TIMES PER DAY
     Route: 048
     Dates: start: 20070826, end: 20070908
  4. SELBEX [Concomitant]
     Indication: GASTRITIS
     Dosage: 50MG THREE TIMES PER DAY
     Route: 048
     Dates: start: 20070826, end: 20070908
  5. UNKNOWN MEDICATION [Concomitant]
     Dosage: 40MG PER DAY
     Route: 048
     Dates: start: 20070821, end: 20070908
  6. MAGMITT [Concomitant]
     Indication: CONSTIPATION
     Dosage: 990MG PER DAY
     Route: 048
     Dates: start: 20070821, end: 20070908
  7. ARICEPT [Concomitant]
     Dosage: 5MG PER DAY
     Route: 048
     Dates: start: 20070821, end: 20070908
  8. UNKNOWN NAME [Concomitant]
     Dosage: 10MG PER DAY
     Route: 048
     Dates: start: 20070821, end: 20070902
  9. ADALAT [Concomitant]
     Indication: HYPERTENSION
     Dosage: 40MG PER DAY
     Route: 048
     Dates: start: 20070904, end: 20070908
  10. MEVALOTIN [Concomitant]
     Dosage: 10MG PER DAY
     Route: 048
     Dates: start: 20070904
  11. SEPAMIT [Concomitant]
     Dosage: 2G PER DAY
     Route: 048
     Dates: start: 20070903, end: 20070908
  12. PROMAC [Concomitant]
     Indication: GASTRIC ULCER
     Route: 048
     Dates: start: 20070914
  13. FLUMARIN [Concomitant]
     Dosage: 2G PER DAY
     Route: 042
     Dates: start: 20070825, end: 20070827
  14. ALTAT [Concomitant]
     Route: 042
     Dates: start: 20070821, end: 20070825
  15. CEFMETAZON [Concomitant]
     Dosage: 2G PER DAY
     Route: 042
     Dates: start: 20070922, end: 20070922
  16. MAGMITT [Concomitant]
     Dosage: 990MG PER DAY
     Route: 048
     Dates: start: 20070914
  17. ARICEPT [Concomitant]
     Dosage: 5MG PER DAY
     Route: 048
     Dates: start: 20070914

REACTIONS (2)
  - DUODENAL ULCER [None]
  - HAEMATEMESIS [None]
